FAERS Safety Report 22186162 (Version 1)
Quarter: 2023Q2

REPORT INFORMATION
  Report Type: Spontaneous
  Country: IQ (occurrence: IQ)
  Receive Date: 20230407
  Receipt Date: 20230407
  Transmission Date: 20230722
  Serious: Yes (Other)
  Sender: FDA-Public Use
  Company Number: IQ-009507513-2110IRQ000662

PATIENT
  Age: 54 Year
  Sex: Male

DRUGS (9)
  1. KEYTRUDA [Suspect]
     Active Substance: PEMBROLIZUMAB
     Indication: Lung neoplasm malignant
     Dosage: 3RD CYCLE
     Dates: start: 2021, end: 2021
  2. CARBOPLATIN [Suspect]
     Active Substance: CARBOPLATIN
     Indication: Lung neoplasm malignant
     Dosage: 2 CYCLES
     Dates: start: 2021, end: 2021
  3. CARBOPLATIN [Suspect]
     Active Substance: CARBOPLATIN
     Dosage: 3RD CYCLE
     Dates: start: 2021, end: 2021
  4. CARBOPLATIN [Suspect]
     Active Substance: CARBOPLATIN
     Dosage: 3 CYCLES
     Dates: start: 2021, end: 2022
  5. TAXOL [Suspect]
     Active Substance: PACLITAXEL
     Indication: Lung neoplasm malignant
     Dosage: 2 CYCLES
     Dates: start: 2021, end: 2021
  6. TAXOL [Suspect]
     Active Substance: PACLITAXEL
     Dosage: 3RD CYCLE
     Dates: start: 2021, end: 2021
  7. TAXOL [Suspect]
     Active Substance: PACLITAXEL
     Dosage: 3 CYCLES
     Dates: start: 2021, end: 2022
  8. TAXOL [Suspect]
     Active Substance: PACLITAXEL
     Dosage: UNK
     Dates: start: 2022, end: 202206
  9. ERLOTINIB [Suspect]
     Active Substance: ERLOTINIB
     Indication: Lung neoplasm malignant
     Dosage: UNK
     Dates: start: 2022

REACTIONS (10)
  - Brain oedema [Recovered/Resolved]
  - Malignant neoplasm progression [Unknown]
  - Photophobia [Recovered/Resolved]
  - Aphasia [Recovered/Resolved]
  - Pallor [Unknown]
  - Hypotension [Recovered/Resolved]
  - Speech disorder [Recovered/Resolved]
  - Nausea [Unknown]
  - Headache [Not Recovered/Not Resolved]
  - Pyrexia [Unknown]

NARRATIVE: CASE EVENT DATE: 20210101
